FAERS Safety Report 4541350-8 (Version None)
Quarter: 2004Q4

REPORT INFORMATION
  Report Type: 
  Country: None (occurrence: None)
  Receive Date: 20041229
  Receipt Date: 20041013
  Transmission Date: 20050328
  Serious: Yes (Hospitalization)
  Sender: FDA-Public Use
  Company Number: DE-MERCK-0410DEU00433

PATIENT
  Age: 57 Year
  Sex: Male

DRUGS (7)
  1. ISOSORBIDE DINITRATE [Concomitant]
     Route: 048
  2. VIOXX [Suspect]
     Route: 048
     Dates: start: 20020101, end: 20041001
  3. HYDROCHLOROTHIAZIDE AND RAMIPRIL [Concomitant]
     Route: 048
  4. XIPAMIDE [Concomitant]
     Route: 048
  5. ATORVASTATIN CALCIUM [Concomitant]
     Route: 048
  6. PANTOPRAZOLE SODIUM [Concomitant]
     Route: 048
  7. ASPIRIN [Concomitant]
     Route: 048

REACTIONS (2)
  - ANGINA UNSTABLE [None]
  - STENT OCCLUSION [None]
